FAERS Safety Report 7804086-3 (Version None)
Quarter: 2011Q4

REPORT INFORMATION
  Report Type: 
  Country: None (occurrence: None)
  Receive Date: 20111010
  Receipt Date: 20111004
  Transmission Date: 20120403
  Serious: Yes (Other)
  Sender: FDA-Public Use
  Company Number: US-PFIZER INC-2011237050

PATIENT
  Sex: Male
  Weight: 90.703 kg

DRUGS (2)
  1. DEPO-TESTOSTERONE [Suspect]
     Indication: HORMONE REPLACEMENT THERAPY
     Dosage: 200 MG/ML ONCE EVERY 2 WEEKS
     Route: 030
     Dates: start: 19820101
  2. LORAZEPAM [Concomitant]
     Dosage: 1 MG, 2X/DAY

REACTIONS (1)
  - CARDIAC DISORDER [None]
